FAERS Safety Report 22394589 (Version 2)
Quarter: 2024Q1

REPORT INFORMATION
  Report Type: Spontaneous
  Country: US (occurrence: US)
  Receive Date: 20230601
  Receipt Date: 20240116
  Transmission Date: 20240410
  Serious: No
  Sender: FDA-Public Use
  Company Number: US-SA-SAC20230525000592

PATIENT

DRUGS (1)
  1. LARONIDASE [Suspect]
     Active Substance: LARONIDASE
     Indication: Mucopolysaccharidosis I
     Dosage: 63.8 (UNITS NOT KNOWN), QW
     Route: 042
     Dates: start: 20050228

REACTIONS (4)
  - Influenza [Recovering/Resolving]
  - Malaise [Recovering/Resolving]
  - Somnolence [Unknown]
  - Illness [Unknown]

NARRATIVE: CASE EVENT DATE: 20230517
